FAERS Safety Report 26048129 (Version 1)
Quarter: 2025Q4

REPORT INFORMATION
  Report Type: Spontaneous
  Country: EU (occurrence: EU)
  Receive Date: 20251114
  Receipt Date: 20251114
  Transmission Date: 20260118
  Serious: Yes (Other)
  Sender: BRISTOL-MYERS SQUIBB COMPANY
  Company Number: EU-BRISTOL-MYERS SQUIBB COMPANY-2025-153543

PATIENT
  Sex: Female

DRUGS (1)
  1. ELIQUIS [Suspect]
     Active Substance: APIXABAN
     Indication: Atrial fibrillation
     Route: 048
     Dates: start: 202411

REACTIONS (13)
  - Syncope [Unknown]
  - Treatment noncompliance [Unknown]
  - Liver disorder [Unknown]
  - Cataract [Unknown]
  - Asthenia [Unknown]
  - Anxiety [Unknown]
  - Sarcopenia [Unknown]
  - Fall [Unknown]
  - Angina pectoris [Unknown]
  - Injury [Unknown]
  - Contusion [Recovered/Resolved]
  - Pain [Unknown]
  - Hypotension [Unknown]

NARRATIVE: CASE EVENT DATE: 20251001
